FAERS Safety Report 5188733-3 (Version None)
Quarter: 2006Q4

REPORT INFORMATION
  Report Type: 
  Country: None (occurrence: None)
  Receive Date: 20061215
  Receipt Date: 20061128
  Transmission Date: 20070319
  Serious: No
  Sender: FDA-Public Use
  Company Number: TPA2006A02143

PATIENT
  Sex: Male
  Weight: 81.6475 kg

DRUGS (3)
  1. ROZEREM [Suspect]
     Indication: INSOMNIA
     Dosage: 8 MG, QHS, PER ORAL; SEE IMAGE
     Route: 048
     Dates: start: 20061107, end: 20061109
  2. ROZEREM [Suspect]
     Indication: INSOMNIA
     Dosage: 8 MG, QHS, PER ORAL; SEE IMAGE
     Route: 048
     Dates: start: 20061110, end: 20061111
  3. ROZEREM [Suspect]
     Indication: INSOMNIA
     Dosage: 8 MG, QHS, PER ORAL; SEE IMAGE
     Route: 048
     Dates: start: 20061112

REACTIONS (5)
  - DISTURBANCE IN ATTENTION [None]
  - FEELING ABNORMAL [None]
  - IMPAIRED WORK ABILITY [None]
  - SOMNOLENCE [None]
  - TREATMENT NONCOMPLIANCE [None]
